FAERS Safety Report 8416668-9 (Version None)
Quarter: 2012Q2

REPORT INFORMATION
  Report Type: 
  Country: None (occurrence: None)
  Receive Date: 20120323
  Receipt Date: 20110322
  Transmission Date: 20120825
  Serious: Yes (Hospitalization)
  Sender: FDA-Public Use
  Company Number: 163-21880-11023088

PATIENT
  Age: 86 Year
  Sex: Male
  Weight: 117 kg

DRUGS (5)
  1. SPIRIVA [Concomitant]
  2. REVLIMID [Suspect]
     Indication: MYELODYSPLASTIC SYNDROME
     Dosage: 5 MG, 1 IN 1 D, PO
     Route: 048
     Dates: start: 20100519
  3. LASIX [Concomitant]
  4. ADVAIR HFA [Concomitant]
  5. GLIPIZIDE [Concomitant]

REACTIONS (3)
  - CHRONIC OBSTRUCTIVE PULMONARY DISEASE [None]
  - COLITIS [None]
  - PNEUMONIA [None]
